FAERS Safety Report 15321708 (Version 2)
Quarter: 2018Q3

REPORT INFORMATION
  Report Type: Spontaneous
  Country: US (occurrence: US)
  Receive Date: 20180827
  Receipt Date: 20180906
  Transmission Date: 20181010
  Serious: No
  Sender: FDA-Public Use
  Company Number: US-SUNOVION-2018SUN003219

PATIENT
  Sex: Male

DRUGS (2)
  1. LONHALA MAGNAIR [Suspect]
     Active Substance: GLYCOPYRROLATE
     Indication: CHRONIC OBSTRUCTIVE PULMONARY DISEASE
     Dosage: UNK
     Route: 055
  2. VENTOLIN [Concomitant]
     Active Substance: ALBUTEROL SULFATE
     Indication: EMERGENCY CARE
     Dosage: 2 TO 3 TIMES A DAY

REACTIONS (10)
  - Cough [Unknown]
  - Therapeutic response unexpected [Unknown]
  - Logorrhoea [Unknown]
  - Arterial occlusive disease [Unknown]
  - Infection [Recovering/Resolving]
  - Oedema peripheral [Not Recovered/Not Resolved]
  - Dry throat [Unknown]
  - Underdose [Unknown]
  - Wheezing [Recovering/Resolving]
  - Secretion discharge [Unknown]
